FAERS Safety Report 5646470-2 (Version None)
Quarter: 2008Q1

REPORT INFORMATION
  Report Type: 
  Country: None (occurrence: None)
  Receive Date: 20080228
  Receipt Date: 20080228
  Transmission Date: 20080703
  Serious: Yes (Other)
  Sender: FDA-Public Use
  Company Number: None

PATIENT
  Sex: Female
  Weight: 95.709 kg

DRUGS (4)
  1. PROTONIX [Suspect]
     Indication: NAUSEA
     Dosage: 40MG, QAM, PO
     Route: 048
  2. PROTONIX [Suspect]
     Indication: VOMITING
     Dosage: 40MG, QAM, PO
     Route: 048
  3. NEXIUM [Suspect]
     Indication: ABDOMINAL PAIN
     Dosage: 40 MG QAM, PO
     Route: 048
  4. NEXIUM [Suspect]
     Indication: CHEST PAIN
     Dosage: 40 MG QAM, PO
     Route: 048

REACTIONS (1)
  - NO THERAPEUTIC RESPONSE [None]
